FAERS Safety Report 10032856 (Version 2)
Quarter: 2014Q1

REPORT INFORMATION
  Report Type: Report from Study
  Country: US (occurrence: US)
  Receive Date: 20140324
  Receipt Date: 20140324
  Transmission Date: 20141002
  Serious: Yes (Hospitalization)
  Sender: FDA-Public Use
  Company Number: US-SA-2014SA001240

PATIENT
  Age: 39 Year
  Sex: Female

DRUGS (1)
  1. AUBAGIO [Suspect]
     Indication: MULTIPLE SCLEROSIS
     Route: 048
     Dates: start: 20131217

REACTIONS (7)
  - Cholecystectomy [Unknown]
  - Liver function test abnormal [Unknown]
  - Influenza like illness [Not Recovered/Not Resolved]
  - Pain [Recovering/Resolving]
  - Pyrexia [Recovering/Resolving]
  - Blood glucose increased [Unknown]
  - Weight decreased [Unknown]
